FAERS Safety Report 10601591 (Version 3)
Quarter: 2015Q1

REPORT INFORMATION
  Report Type: Spontaneous
  Country: FI (occurrence: FI)
  Receive Date: 20141124
  Receipt Date: 20150325
  Transmission Date: 20150720
  Serious: Yes (Other)
  Sender: FDA-Public Use
  Company Number: FI-PFIZER INC-2014318674

PATIENT
  Age: 48 Year
  Sex: Male

DRUGS (20)
  1. AMBISOME [Concomitant]
     Active Substance: AMPHOTERICIN B
     Dosage: 100 MG, 1X/DAY
     Route: 042
     Dates: start: 20141017
  2. AMBISOME [Concomitant]
     Active Substance: AMPHOTERICIN B
     Dosage: 200 MG, 1X/DAY
     Route: 042
     Dates: end: 20141027
  3. KETIPINOR [Concomitant]
     Indication: INITIAL INSOMNIA
     Dosage: 25 MG, 1X/DAY IF NEEDED
     Dates: start: 20140925, end: 20141003
  4. VFEND [Suspect]
     Active Substance: VORICONAZOLE
     Indication: EYE INFECTION FUNGAL
     Dosage: UNK
     Route: 031
     Dates: start: 20140921
  5. CIPROXIN [Concomitant]
     Active Substance: CIPROFLOXACIN
     Dosage: 750 MG, 2X/DAY
     Route: 048
     Dates: start: 20140915, end: 20140919
  6. OFTAN-DEXA-CHLORA [Concomitant]
     Dosage: UNK
     Route: 061
     Dates: start: 20140915
  7. VIGAMOX [Concomitant]
     Active Substance: MOXIFLOXACIN HYDROCHLORIDE
     Route: 061
  8. OFTAN-SCOPOLAMIN [Concomitant]
     Route: 061
  9. PARACETAMOL [Concomitant]
     Active Substance: ACETAMINOPHEN
     Indication: PAIN
     Dosage: 1 G, 1-3 TIMES DAILY AS NEEDED
  10. VFEND [Suspect]
     Active Substance: VORICONAZOLE
     Indication: EYE INFECTION FUNGAL
     Dosage: 200 MG, 2X/DAY
     Route: 048
     Dates: start: 20140920, end: 20140920
  11. BETAFERON [Concomitant]
     Active Substance: INTERFERON BETA-1B
     Dosage: 250 MG/ML EVERY OTHER DAY
  12. VFEND [Suspect]
     Active Substance: VORICONAZOLE
     Dosage: 300 MG, 2X/DAY
     Dates: start: 20141030, end: 20141107
  13. TAVANIC [Concomitant]
     Active Substance: LEVOFLOXACIN
     Dosage: 500 MG, 1X/DAY
     Route: 048
     Dates: start: 20140919, end: 20141014
  14. CIPROXIN [Concomitant]
     Active Substance: CIPROFLOXACIN
     Dosage: 250 MG, 2X/DAY
     Route: 048
     Dates: start: 20141014, end: 20141110
  15. OFTAGEL [Concomitant]
     Active Substance: CARBOMER
     Route: 061
  16. ZOPINOX [Concomitant]
     Active Substance: ZOPICLONE
     Indication: INITIAL INSOMNIA
     Dosage: 7.5 MG, 1X/DAY IF NEEDED
     Dates: start: 20141003
  17. VFEND [Suspect]
     Active Substance: VORICONAZOLE
     Dosage: 400 MG, 2X/DAY
     Route: 048
     Dates: start: 20141027
  18. ATACAND [Concomitant]
     Active Substance: CANDESARTAN CILEXETIL
     Dosage: 4 MG
     Dates: start: 2012
  19. TENOX [Concomitant]
     Active Substance: TEMAZEPAM
     Dosage: 40 MG, DAILY IF NEEDED
     Dates: start: 20140925, end: 20141003
  20. ROCEPHALIN [Concomitant]
     Active Substance: CEFTRIAXONE
     Dosage: 2 G, 1X/DAY
     Route: 042
     Dates: start: 20140915, end: 20140919

REACTIONS (12)
  - Optic neuritis [Not Recovered/Not Resolved]
  - Photophobia [Not Recovered/Not Resolved]
  - Hepatic enzyme increased [Recovered/Resolved]
  - Vision blurred [Not Recovered/Not Resolved]
  - Intentional product use issue [Unknown]
  - Hallucination [Recovered/Resolved]
  - Drug ineffective [Not Recovered/Not Resolved]
  - Visual impairment [Not Recovered/Not Resolved]
  - Blindness unilateral [Not Recovered/Not Resolved]
  - Halo vision [Not Recovered/Not Resolved]
  - Visual acuity reduced [Not Recovered/Not Resolved]
  - Colour blindness acquired [Not Recovered/Not Resolved]

NARRATIVE: CASE EVENT DATE: 2014
